FAERS Safety Report 12428651 (Version 1)
Quarter: 2016Q2

REPORT INFORMATION
  Report Type: Spontaneous
  Country: US (occurrence: US)
  Receive Date: 20160602
  Receipt Date: 20160602
  Transmission Date: 20160815
  Serious: Yes (Hospitalization, Other)
  Sender: FDA-Public Use
  Company Number: US-NOVOPROD-493812

PATIENT
  Age: 83 Year
  Sex: Female
  Weight: 84 kg

DRUGS (4)
  1. LEVEMIR [Suspect]
     Active Substance: INSULIN DETEMIR
     Indication: DIABETES MELLITUS
     Dosage: 60 U, BID
     Route: 058
     Dates: end: 20160521
  2. LEVEMIR [Suspect]
     Active Substance: INSULIN DETEMIR
     Dosage: 90 U, QD (60 UNITS THE AM AND 30 UNITS IN THE PM)
     Route: 058
     Dates: start: 20160521, end: 20160521
  3. LEVEMIR [Suspect]
     Active Substance: INSULIN DETEMIR
     Dosage: 90 U, QD (60 UNITS IN THE AM AND 30 UNITS IN THE PM)
     Route: 058
     Dates: start: 20160522
  4. NOVOLOG [Concomitant]
     Active Substance: INSULIN ASPART
     Indication: DIABETES MELLITUS
     Route: 058

REACTIONS (4)
  - Product quality issue [Not Recovered/Not Resolved]
  - Blood glucose decreased [Recovered/Resolved]
  - Pneumonia [Recovering/Resolving]
  - Blood glucose decreased [Recovered/Resolved]

NARRATIVE: CASE EVENT DATE: 201605
